FAERS Safety Report 4999519-4 (Version None)
Quarter: 2006Q2

REPORT INFORMATION
  Report Type: 
  Country: None (occurrence: None)
  Receive Date: 20060509
  Receipt Date: 20060509
  Transmission Date: 20061013
  Serious: Yes (Life-Threatening)
  Sender: FDA-Public Use
  Company Number: None

PATIENT
  Age: 55 Year
  Sex: Female
  Weight: 60.9 kg

DRUGS (1)
  1. TAXOL [Suspect]
     Indication: OVARIAN CANCER
     Dosage: 1ST TIME
     Route: 042
     Dates: start: 20060216

REACTIONS (5)
  - ABNORMAL BEHAVIOUR [None]
  - BLOOD PRESSURE IMMEASURABLE [None]
  - ERYTHEMA [None]
  - NAUSEA [None]
  - OXYGEN SATURATION DECREASED [None]
